FAERS Safety Report 19568717 (Version 2)
Quarter: 2021Q4

REPORT INFORMATION
  Report Type: Report from Study
  Country: US (occurrence: US)
  Receive Date: 20210714
  Receipt Date: 20211006
  Transmission Date: 20220303
  Serious: Yes (Death, Other)
  Sender: FDA-Public Use
  Company Number: US-SEATTLE GENETICS-2021SGN02919

PATIENT
  Sex: Female

DRUGS (4)
  1. TUCATINIB [Suspect]
     Active Substance: TUCATINIB
     Indication: Breast cancer female
     Dosage: UNK
  2. TUCATINIB [Suspect]
     Active Substance: TUCATINIB
     Dosage: UNK
  3. TUCATINIB [Suspect]
     Active Substance: TUCATINIB
     Dosage: UNK
  4. OXYCODONE [Suspect]
     Active Substance: OXYCODONE
     Indication: Product used for unknown indication

REACTIONS (13)
  - Death [Fatal]
  - Hepatic neoplasm [Unknown]
  - Skin discolouration [Unknown]
  - Burning sensation [Unknown]
  - Malaise [Unknown]
  - Cough [Unknown]
  - Abdominal discomfort [Unknown]
  - Laboratory test abnormal [Unknown]
  - Walking aid user [Unknown]
  - Dysstasia [Unknown]
  - Drug hypersensitivity [Unknown]
  - Contrast media allergy [Unknown]
  - Abdominal pain upper [Recovering/Resolving]
